FAERS Safety Report 25274370 (Version 1)
Quarter: 2025Q2

REPORT INFORMATION
  Report Type: Spontaneous
  Country: PS (occurrence: PS)
  Receive Date: 20250506
  Receipt Date: 20250506
  Transmission Date: 20250716
  Serious: Yes (Hospitalization)
  Sender: COOPERSURGICAL
  Company Number: PS-COOPERSURGICAL, INC.-2025CPS003420

PATIENT
  Age: 34 Year
  Sex: Female

DRUGS (1)
  1. COPPER [Suspect]
     Active Substance: COPPER
     Indication: Contraception
     Route: 015
     Dates: start: 2014

REACTIONS (5)
  - Urinary tract infection [Recovered/Resolved]
  - Lower urinary tract symptoms [Recovered/Resolved]
  - Calculus bladder [Recovered/Resolved]
  - Anaemia [Recovered/Resolved]
  - Device dislocation [Recovered/Resolved]

NARRATIVE: CASE EVENT DATE: 20150101
